FAERS Safety Report 5751883-4 (Version None)
Quarter: 2008Q2

REPORT INFORMATION
  Report Type: 
  Country: None (occurrence: None)
  Receive Date: 20080529
  Receipt Date: 20080520
  Transmission Date: 20081010
  Serious: Yes (Death, Hospitalization)
  Sender: FDA-Public Use
  Company Number: US-BAYER-US-2007-022870

PATIENT
  Age: 66 Year
  Sex: Male
  Weight: 90 kg

DRUGS (14)
  1. CAMPATH [Suspect]
     Indication: CHRONIC LYMPHOCYTIC LEUKAEMIA
     Route: 058
     Dates: start: 20060918, end: 20061027
  2. FLUDARA [Suspect]
     Indication: CHRONIC LYMPHOCYTIC LEUKAEMIA
     Route: 042
     Dates: start: 20060109, end: 20060603
  3. RITUXIMAB [Suspect]
     Indication: CHRONIC LYMPHOCYTIC LEUKAEMIA
     Route: 042
     Dates: start: 20060109, end: 20060530
  4. DIPHENHYDRAMINE HCL [Concomitant]
     Indication: PREMEDICATION
  5. ACETAMINOPHEN [Concomitant]
     Indication: PREMEDICATION
     Route: 048
  6. COTRIM [Concomitant]
     Indication: INFECTION PROPHYLAXIS
     Route: 048
  7. ASPIRIN [Concomitant]
  8. PLAVIX [Concomitant]
  9. COLACE [Concomitant]
  10. LOPRESSOR [Concomitant]
  11. PROTONIX [Concomitant]
  12. PRAVACHOL [Concomitant]
  13. ATARAX [Concomitant]
  14. ACYCLOVIR SODIUM [Concomitant]

REACTIONS (25)
  - ABDOMINAL DISTENSION [None]
  - ACUTE RESPIRATORY DISTRESS SYNDROME [None]
  - ALANINE AMINOTRANSFERASE INCREASED [None]
  - ASCITES [None]
  - ASPARTATE AMINOTRANSFERASE INCREASED [None]
  - ATRIAL FIBRILLATION [None]
  - ATRIAL FLUTTER [None]
  - BLOOD BILIRUBIN INCREASED [None]
  - BLOOD CREATININE INCREASED [None]
  - DYSPNOEA [None]
  - HAEMOGLOBIN DECREASED [None]
  - HYPOTENSION [None]
  - HYPOXIA [None]
  - INFECTION [None]
  - KLEBSIELLA INFECTION [None]
  - NEUTROPHIL COUNT DECREASED [None]
  - PLATELET COUNT DECREASED [None]
  - PLEURAL EFFUSION [None]
  - PNEUMONIA LEGIONELLA [None]
  - PNEUMONITIS [None]
  - RENAL FAILURE ACUTE [None]
  - SMALL INTESTINAL OBSTRUCTION [None]
  - TRACHEAL HAEMORRHAGE [None]
  - URINARY TRACT INFECTION [None]
  - VISCERAL OEDEMA [None]
